FAERS Safety Report 13482614 (Version 3)
Quarter: 2017Q2

REPORT INFORMATION
  Report Type: Spontaneous
  Country: HU (occurrence: HU)
  Receive Date: 20170426
  Receipt Date: 20170522
  Transmission Date: 20170830
  Serious: Yes (Other)
  Sender: FDA-Public Use
  Company Number: HU-009507513-1704HUN007553

PATIENT
  Age: 55 Year
  Sex: Female

DRUGS (1)
  1. DIPROPHOS [Suspect]
     Active Substance: BETAMETHASONE DIPROPIONATE\BETAMETHASONE SODIUM PHOSPHATE
     Indication: EPICONDYLITIS
     Dosage: 1 DF=EQUIVALENT TO 7MG BETAMETHASONE
     Route: 058
     Dates: start: 20170309, end: 20170309

REACTIONS (3)
  - Injection site necrosis [Recovered/Resolved with Sequelae]
  - Product contamination [Unknown]
  - Injection site inflammation [Recovered/Resolved with Sequelae]

NARRATIVE: CASE EVENT DATE: 201703
